FAERS Safety Report 19762619 (Version 1)
Quarter: 2021Q3

REPORT INFORMATION
  Report Type: Spontaneous
  Country: US (occurrence: US)
  Receive Date: 20210828
  Receipt Date: 20210828
  Transmission Date: 20211014
  Serious: No
  Sender: FDA-Public Use
  Company Number: US-ASTRAZENECA-2021A695972

PATIENT
  Sex: Male
  Weight: 88.5 kg

DRUGS (5)
  1. RESCUE INHALERS [Concomitant]
     Active Substance: UNSPECIFIED INGREDIENT
  2. DEXILANT [Concomitant]
     Active Substance: DEXLANSOPRAZOLE
     Indication: DYSPEPSIA
  3. STATIN [Concomitant]
     Active Substance: UNSPECIFIED INGREDIENT
     Indication: BLOOD PRESSURE MEASUREMENT
  4. BLOOD PRESSURE MEDICATION [Concomitant]
     Active Substance: UNSPECIFIED INGREDIENT
  5. BREZTRI AEROSPHERE [Suspect]
     Active Substance: BUDESONIDE\FORMOTEROL\GLYCOPYRRONIUM
     Indication: CHRONIC OBSTRUCTIVE PULMONARY DISEASE
     Dosage: 2 PUFFS TWICE DAILY (2 PUFFS IN THE MORNING/2 PUFFS AT NIGHT)
     Route: 055

REACTIONS (3)
  - Asthma [Unknown]
  - Drug ineffective [Unknown]
  - Intentional device misuse [Unknown]
